FAERS Safety Report 6457547-6 (Version None)
Quarter: 2009Q4

REPORT INFORMATION
  Report Type: 
  Country: None (occurrence: None)
  Receive Date: 20091125
  Receipt Date: 20091116
  Transmission Date: 20100525
  Serious: Yes (Hospitalization)
  Sender: FDA-Public Use
  Company Number: PHHO2009US14347

PATIENT
  Sex: Female
  Weight: 113 kg

DRUGS (2)
  1. RAD 666 RAD+TAB [Suspect]
     Indication: TRANSITIONAL CELL CARCINOMA
     Dosage: 5 MG MON/WED/FRI
     Route: 048
  2. GEMCITABINE COMPARATOR COMP-GEM+ [Suspect]
     Indication: TRANSITIONAL CELL CARCINOMA
     Dosage: 800 MG.M2-D1
     Route: 042

REACTIONS (5)
  - DEEP VEIN THROMBOSIS [None]
  - LYMPHADENOPATHY [None]
  - MALIGNANT NEOPLASM PROGRESSION [None]
  - METASTASES TO LIVER [None]
  - PULMONARY EMBOLISM [None]
